FAERS Safety Report 12312293 (Version 1)
Quarter: 2016Q2

REPORT INFORMATION
  Report Type: Spontaneous
  Country: CN (occurrence: CN)
  Receive Date: 20160428
  Receipt Date: 20160428
  Transmission Date: 20160815
  Serious: Yes (Congenital Anomaly, Other)
  Sender: FDA-Public Use
  Company Number: CN-CIPLA LTD.-2016CN04055

PATIENT

DRUGS (1)
  1. FOLIC ACID. [Suspect]
     Active Substance: FOLIC ACID
     Dosage: 0.4 MG, EVERYDAY FOR ONE MONTH
     Route: 064

REACTIONS (2)
  - Foetal exposure during pregnancy [Unknown]
  - Neural tube defect [Unknown]
